FAERS Safety Report 8504316-9 (Version None)
Quarter: 2012Q3

REPORT INFORMATION
  Report Type: 
  Country: None (occurrence: None)
  Receive Date: 20120711
  Receipt Date: 20120705
  Transmission Date: 20120928
  Serious: No
  Sender: FDA-Public Use
  Company Number: US-BAYER-2012-058029

PATIENT
  Age: 36 Year
  Sex: Female
  Weight: 87.075 kg

DRUGS (2)
  1. MIRENA [Suspect]
     Indication: CONTRACEPTION
     Dosage: 20 MCG/24HR, CONT
     Route: 015
     Dates: start: 20111027, end: 20120601
  2. MIRENA [Suspect]
     Indication: MENORRHAGIA

REACTIONS (2)
  - PELVIC PAIN [None]
  - DEVICE EXPULSION [None]
